FAERS Safety Report 4347496-1 (Version None)
Quarter: 2004Q2

REPORT INFORMATION
  Report Type: 
  Country: None (occurrence: None)
  Receive Date: 20040422
  Receipt Date: 20040407
  Transmission Date: 20050107
  Serious: Yes (Hospitalization, Other)
  Sender: FDA-Public Use
  Company Number: USA040464403

PATIENT
  Age: 67 Year
  Sex: Female

DRUGS (6)
  1. FORTEO [Suspect]
     Indication: OSTEOPOROSIS
     Dosage: 20 UG DAY
     Dates: start: 20030301, end: 20040301
  2. AMBIEN [Concomitant]
  3. EFFEXOR [Concomitant]
  4. PROTONIX [Concomitant]
  5. PROCRIT  (ERYTHROPOIETIN) [Concomitant]
  6. NEURONTIN [Concomitant]

REACTIONS (6)
  - BLOOD SODIUM DECREASED [None]
  - BREAST PAIN [None]
  - CHEST WALL PAIN [None]
  - PROCTALGIA [None]
  - RENAL CYST [None]
  - URINARY TRACT INFECTION [None]
